FAERS Safety Report 6670039-4 (Version None)
Quarter: 2010Q2

REPORT INFORMATION
  Report Type: 
  Country: None (occurrence: None)
  Receive Date: 20100405
  Receipt Date: 20100322
  Transmission Date: 20101027
  Serious: Yes (Hospitalization)
  Sender: FDA-Public Use
  Company Number: 1000012634

PATIENT
  Age: 91 Year
  Sex: Female

DRUGS (4)
  1. MEMANTINE HCL [Suspect]
     Indication: DEMENTIA
     Dosage: 10 MG (10 MG,  1 IN 1 D),ORAL
     Route: 048
     Dates: start: 20080201, end: 20091124
  2. MEMANTINE HCL [Suspect]
     Indication: DEMENTIA ALZHEIMER'S TYPE
     Dosage: 10 MG (10 MG,  1 IN 1 D),ORAL
     Route: 048
     Dates: start: 20080201, end: 20091124
  3. HALOPERIDOL [Concomitant]
  4. DICLOFENAC (SOLUTION) [Concomitant]

REACTIONS (1)
  - PANCREATITIS [None]
